FAERS Safety Report 5427431-5 (Version None)
Quarter: 2007Q3

REPORT INFORMATION
  Report Type: 
  Country: None (occurrence: None)
  Receive Date: 20070828
  Receipt Date: 20070820
  Transmission Date: 20080115
  Serious: Yes (Other)
  Sender: FDA-Public Use
  Company Number: US-ELI_LILLY_AND_COMPANY-US_031199030

PATIENT
  Age: 67 Year
  Sex: Female

DRUGS (1)
  1. GEMCITABINE HCL [Suspect]
     Indication: OVARIAN EPITHELIAL CANCER
     Dosage: 800 MG/M2, WEEKLY (1/W)
     Route: 042

REACTIONS (2)
  - NEUTROPENIA [None]
  - RECALL PHENOMENON [None]
